FAERS Safety Report 17535132 (Version 1)
Quarter: 2020Q1

REPORT INFORMATION
  Report Type: Other
  Country: CN (occurrence: CN)
  Receive Date: 20200312
  Receipt Date: 20200312
  Transmission Date: 20200409
  Serious: Yes (Hospitalization)
  Sender: FDA-Public Use
  Company Number: CN-B.BRAUN MEDICAL INC.-2081571

PATIENT
  Age: 27 Year
  Sex: Male

DRUGS (5)
  1. SODIUM CHLORIDE INJECTION USP 0264-7800-09 [Suspect]
     Active Substance: SODIUM CHLORIDE
  2. ANTI-INFECTIVE AGENTS [Concomitant]
  3. GLUCOCORTICOIDS [Concomitant]
     Active Substance: UNSPECIFIED INGREDIENT
  4. THYROID HORMONE SUPPLEMENTATION [Concomitant]
  5. ANDROGEN SUPPLEMENTATION [Concomitant]

REACTIONS (1)
  - Demyelination [None]
